FAERS Safety Report 6341961-3 (Version None)
Quarter: 2009Q3

REPORT INFORMATION
  Report Type: 
  Country: None (occurrence: None)
  Receive Date: 20090904
  Receipt Date: 20090825
  Transmission Date: 20100115
  Serious: Yes (Death, Other)
  Sender: FDA-Public Use
  Company Number: DE-GENENTECH-289657

PATIENT

DRUGS (1)
  1. AVASTIN [Suspect]
     Indication: COLORECTAL CANCER METASTATIC
     Route: 065

REACTIONS (12)
  - ANAEMIA [None]
  - DEATH [None]
  - DIARRHOEA [None]
  - EMBOLISM [None]
  - HAEMORRHAGE [None]
  - INFECTION [None]
  - LEUKOPENIA [None]
  - NEOPLASM MALIGNANT [None]
  - PALMAR-PLANTAR ERYTHRODYSAESTHESIA SYNDROME [None]
  - PNEUMONIA [None]
  - POLYNEUROPATHY [None]
  - SEPSIS [None]
